FAERS Safety Report 10955938 (Version 2)
Quarter: 2015Q2

REPORT INFORMATION
  Report Type: Spontaneous
  Country: CA (occurrence: CA)
  Receive Date: 20150326
  Receipt Date: 20150505
  Transmission Date: 20150821
  Serious: Yes (Hospitalization, Other)
  Sender: FDA-Public Use
  Company Number: CA-ROCHE-1547983

PATIENT
  Age: 59 Year
  Sex: Female

DRUGS (5)
  1. VENTOLINE [Concomitant]
     Active Substance: ALBUTEROL
  2. STERI-NEB SALAMOL [Concomitant]
  3. SYMBICORT [Concomitant]
     Active Substance: BUDESONIDE\FORMOTEROL FUMARATE DIHYDRATE
  4. XOLAIR [Suspect]
     Active Substance: OMALIZUMAB
     Indication: ASTHMA
     Route: 058
     Dates: start: 20150123
  5. SPIRIVA [Concomitant]
     Active Substance: TIOTROPIUM BROMIDE MONOHYDRATE

REACTIONS (2)
  - Cerebrovascular accident [Recovering/Resolving]
  - Musculoskeletal discomfort [Unknown]

NARRATIVE: CASE EVENT DATE: 201502
